FAERS Safety Report 8926577 (Version 1)
Quarter: 2012Q4

REPORT INFORMATION
  Report Type: 
  Country: BR (occurrence: BR)
  Receive Date: 20121127
  Receipt Date: 20121127
  Transmission Date: 20130627
  Serious: Yes (Other)
  Sender: FDA-Public Use
  Company Number: BR-PFIZER INC-2012292164

PATIENT
  Age: 55 Year
  Sex: Male

DRUGS (1)
  1. CAVERJECT [Suspect]
     Indication: VASCULAR DISORDER
     Dosage: 20 ug, once weekly
     Dates: start: 201210

REACTIONS (3)
  - Diabetes mellitus [Unknown]
  - Off label use [Unknown]
  - Drug ineffective for unapproved indication [Unknown]
